FAERS Safety Report 5919469-6 (Version None)
Quarter: 2008Q4

REPORT INFORMATION
  Report Type: 
  Country: None (occurrence: None)
  Receive Date: 20081014
  Receipt Date: 20081014
  Transmission Date: 20090506
  Serious: No
  Sender: FDA-Public Use
  Company Number: None

PATIENT
  Age: 41 Year
  Sex: Female
  Weight: 83.9154 kg

DRUGS (2)
  1. PEPCID [Suspect]
     Indication: DYSPEPSIA
     Dosage: 20 MG 1 OR 2 PER DAY PO
     Route: 048
     Dates: start: 20081007, end: 20081012
  2. PEPCID [Suspect]
     Indication: GASTROOESOPHAGEAL REFLUX DISEASE
     Dosage: 20 MG 1 OR 2 PER DAY PO
     Route: 048
     Dates: start: 20081007, end: 20081012

REACTIONS (4)
  - APHTHOUS STOMATITIS [None]
  - CHEST PAIN [None]
  - DIARRHOEA [None]
  - HYPOPHAGIA [None]
